FAERS Safety Report 13245630 (Version 3)
Quarter: 2017Q1

REPORT INFORMATION
  Report Type: Spontaneous
  Country: NZ (occurrence: NZ)
  Receive Date: 20170217
  Receipt Date: 20170315
  Transmission Date: 20170428
  Serious: Yes (Other)
  Sender: FDA-Public Use
  Company Number: NZ-KADMON PHARMACEUTICALS, LLC-KAD201702-000398

PATIENT
  Age: 64 Year
  Sex: Male

DRUGS (6)
  1. NADOLOL. [Concomitant]
     Active Substance: NADOLOL
     Indication: PORTAL HYPERTENSION
     Dosage: TABLET
     Route: 048
     Dates: start: 201308
  2. VIEKIRA PAK [Suspect]
     Active Substance: DASABUVIR\OMBITASVIR\PARITAPREVIR\RITONAVIR
     Indication: HEPATITIS C
     Dosage: 12.5/75/50 MG, TWO TABLETS IN THE MORNING/ 250 MG, ONE TABLET TWICE DAILY
     Route: 048
     Dates: start: 20160806, end: 20161011
  3. METFORMIN [Concomitant]
     Active Substance: METFORMIN HYDROCHLORIDE
     Indication: DIABETES MELLITUS
     Dosage: TABLET
     Route: 048
  4. OMEPRAZOLE. [Concomitant]
     Active Substance: OMEPRAZOLE
     Dosage: TABLET
     Route: 048
  5. RIBAVIRIN. [Suspect]
     Active Substance: RIBAVIRIN
     Indication: HEPATITIS C
     Dosage: TABLET
     Route: 048
     Dates: start: 20160806, end: 20161011
  6. FERROUS FUMARATE [Concomitant]
     Active Substance: FERROUS FUMARATE
     Indication: ANAEMIA
     Dosage: TABLET
     Route: 048
     Dates: start: 20160129

REACTIONS (3)
  - Ascites [Recovered/Resolved]
  - Abdominal distension [Unknown]
  - Hepatic failure [Unknown]

NARRATIVE: CASE EVENT DATE: 20161011
